FAERS Safety Report 5052891-1 (Version None)
Quarter: 2006Q3

REPORT INFORMATION
  Report Type: 
  Country: None (occurrence: None)
  Receive Date: 20060712
  Receipt Date: 20060707
  Transmission Date: 20061208
  Serious: Yes (Other)
  Sender: FDA-Public Use
  Company Number: 2006S1000133

PATIENT
  Age: 15 Year
  Sex: Female
  Weight: 49.2 kg

DRUGS (1)
  1. INOMAX [Suspect]
     Indication: HYPOXIA
     Dosage: 3.3 PPM;CONT;INH
     Route: 055
     Dates: start: 20060603, end: 20060621

REACTIONS (5)
  - BLOOD PRESSURE DECREASED [None]
  - DEVICE LEAKAGE [None]
  - HEART RATE DECREASED [None]
  - OXYGEN SATURATION DECREASED [None]
  - PNEUMOTHORAX [None]
